FAERS Safety Report 5906138-1 (Version None)
Quarter: 2008Q4

REPORT INFORMATION
  Report Type: 
  Country: None (occurrence: None)
  Receive Date: 20081002
  Receipt Date: 20080929
  Transmission Date: 20090506
  Serious: Yes (Death, Other)
  Sender: FDA-Public Use
  Company Number: PHBS2008ES05862

PATIENT
  Age: 70 Year
  Sex: Male

DRUGS (5)
  1. BASILIXIMAB [Suspect]
     Indication: HEART TRANSPLANT
  2. CYCLOSPORINE [Suspect]
     Indication: HEART TRANSPLANT
  3. SIROLIMUS [Suspect]
     Indication: HEART TRANSPLANT
  4. MYCOPHENOLATE MOFETIL [Suspect]
     Indication: HEART TRANSPLANT
  5. STEROIDS NOS [Suspect]
     Indication: HEART TRANSPLANT

REACTIONS (6)
  - ASTHENIA [None]
  - HAEMODIALYSIS [None]
  - INFECTION [None]
  - OEDEMA PERIPHERAL [None]
  - RENAL FAILURE ACUTE [None]
  - SUDDEN DEATH [None]
